FAERS Safety Report 25697635 (Version 1)
Quarter: 2025Q3

REPORT INFORMATION
  Report Type: Spontaneous
  Country: US (occurrence: US)
  Receive Date: 20250819
  Receipt Date: 20250819
  Transmission Date: 20251021
  Serious: No
  Sender: AMGEN
  Company Number: US-AMGEN-USASP2025161727

PATIENT
  Sex: Female

DRUGS (1)
  1. IMDELLTRA [Suspect]
     Active Substance: TARLATAMAB-DLLE
     Indication: Product used for unknown indication
     Route: 065
     Dates: start: 20250812

REACTIONS (4)
  - Chills [Recovered/Resolved]
  - Blood pressure abnormal [Unknown]
  - Gait disturbance [Unknown]
  - Fatigue [Unknown]

NARRATIVE: CASE EVENT DATE: 20250812
